FAERS Safety Report 5161405-7 (Version None)
Quarter: 2006Q4

REPORT INFORMATION
  Report Type: 
  Country: None (occurrence: None)
  Receive Date: 20061130
  Receipt Date: 20050318
  Transmission Date: 20070319
  Serious: No
  Sender: FDA-Public Use
  Company Number: US-GLAXOSMITHKLINE-A0550465A

PATIENT
  Age: 44 Year
  Sex: Female

DRUGS (7)
  1. WELLBUTRIN XL [Suspect]
     Indication: ANXIETY
     Dosage: 300MG PER DAY
     Route: 048
     Dates: start: 20050227
  2. WELLBUTRIN [Suspect]
     Dosage: 75MG THREE TIMES PER DAY
     Route: 048
  3. PAXIL [Suspect]
     Indication: DRUG USE FOR UNKNOWN INDICATION
     Route: 048
  4. LEVOTHROID [Suspect]
     Indication: HYPOTHYROIDISM
     Dosage: 125MCG PER DAY
     Route: 048
  5. LEVOTHYROXINE SODIUM [Concomitant]
  6. BENADRYL [Concomitant]
  7. EFFEXOR [Concomitant]
     Route: 065

REACTIONS (10)
  - ASTHENIA [None]
  - DIZZINESS [None]
  - DRUG INEFFECTIVE [None]
  - DRUG INTERACTION [None]
  - FATIGUE [None]
  - INCREASED APPETITE [None]
  - LETHARGY [None]
  - SINUS DISORDER [None]
  - SINUS HEADACHE [None]
  - SINUSITIS [None]
